FAERS Safety Report 6567412-1 (Version None)
Quarter: 2010Q1

REPORT INFORMATION
  Report Type: 
  Country: None (occurrence: None)
  Receive Date: 20100202
  Receipt Date: 20100125
  Transmission Date: 20100710
  Serious: No
  Sender: FDA-Public Use
  Company Number: US-B.I. PHARMACEUTICALS,INC./RIDGEFIELD-2010-BP-00245BP

PATIENT
  Age: 66 Year
  Sex: Male

DRUGS (3)
  1. SPIRIVA [Suspect]
     Dates: end: 20061019
  2. SYMBICORT [Concomitant]
     Dosage: 4 PUF
  3. ALBUTEROL [Concomitant]

REACTIONS (3)
  - BENIGN PROSTATIC HYPERPLASIA [None]
  - DRY MOUTH [None]
  - DYSURIA [None]
